FAERS Safety Report 7298432-X (Version None)
Quarter: 2011Q1

REPORT INFORMATION
  Report Type: 
  Country: None (occurrence: None)
  Receive Date: 20110204
  Receipt Date: 20110127
  Transmission Date: 20110831
  Serious: Yes (Hospitalization, Other)
  Sender: FDA-Public Use
  Company Number: AXC-2011-000044

PATIENT
  Age: 41 Year
  Sex: Male

DRUGS (6)
  1. AZATHIOPRINE [Suspect]
     Indication: COLITIS ULCERATIVE
  2. PREDNISOLONE [Suspect]
     Indication: COLITIS ULCERATIVE
  3. BUTYLSCOPOLAMINE (BUTYLSCOPOLAMINE) [Suspect]
     Indication: ANALGESIC THERAPY
  4. INFLIXIMAB (INFLIXIMAB) INFUSION [Suspect]
     Indication: COLITIS ULCERATIVE
  5. METAMIZOLE (METAMIZOLE) UNKNOWN [Suspect]
     Indication: ANALGESIC THERAPY
  6. MESALAMINE [Suspect]
     Indication: COLITIS ULCERATIVE

REACTIONS (16)
  - ABDOMINAL TENDERNESS [None]
  - RECTAL HAEMORRHAGE [None]
  - CARDIAC VALVE REPLACEMENT COMPLICATION [None]
  - ENDOCARDITIS [None]
  - ATRIOVENTRICULAR BLOCK [None]
  - COMPUTERISED TOMOGRAM ABNORMAL [None]
  - CARDIAC MURMUR [None]
  - CONDITION AGGRAVATED [None]
  - CARDIAC ARREST [None]
  - CARDIAC VALVE ABSCESS [None]
  - VENTRICULAR DYSFUNCTION [None]
  - OPPORTUNISTIC INFECTION [None]
  - AORTIC VALVE INCOMPETENCE [None]
  - COLITIS [None]
  - VENTRICULAR FIBRILLATION [None]
  - STREPTOCOCCAL INFECTION [None]
